FAERS Safety Report 12983110 (Version 1)
Quarter: 2016Q4

REPORT INFORMATION
  Report Type: Spontaneous
  Country: US (occurrence: US)
  Receive Date: 20161129
  Receipt Date: 20161129
  Transmission Date: 20170207
  Serious: No
  Sender: FDA-Public Use
  Company Number: US-MALLINCKRODT-T201603033

PATIENT
  Age: 60 Year
  Sex: Female
  Weight: 53 kg

DRUGS (4)
  1. LIDOCAINE. [Concomitant]
     Active Substance: LIDOCAINE
     Indication: RADIATION ASSOCIATED PAIN
     Dosage: UNK
     Route: 061
     Dates: start: 20160712
  2. FENTANYL TRANSDERMAL SYSTEM [Suspect]
     Active Substance: FENTANYL
     Indication: RADIATION ASSOCIATED PAIN
     Dosage: 2 PATCHES, Q3D
     Route: 062
     Dates: start: 20160711
  3. FENTANYL TRANSDERMAL SYSTEM [Suspect]
     Active Substance: FENTANYL
     Dosage: 50 ?G/HR, Q3D
     Route: 062
     Dates: start: 20160706
  4. NORCO [Suspect]
     Active Substance: ACETAMINOPHEN\HYDROCODONE BITARTRATE
     Indication: PRODUCT USED FOR UNKNOWN INDICATION
     Dosage: ^10^ MG,EVERY 4-6 HOURS AS NEEDED

REACTIONS (4)
  - Secretion discharge [Unknown]
  - Tremor [Recovering/Resolving]
  - Intentional product use issue [Unknown]
  - Cold sweat [Recovering/Resolving]

NARRATIVE: CASE EVENT DATE: 20160713
